FAERS Safety Report 23292275 (Version 1)
Quarter: 2023Q4

REPORT INFORMATION
  Report Type: Spontaneous
  Country: GB (occurrence: GB)
  Receive Date: 20231213
  Receipt Date: 20231213
  Transmission Date: 20240109
  Serious: Yes (Hospitalization)
  Sender: FDA-Public Use
  Company Number: GB-PFIZER INC-PV202300193499

PATIENT
  Age: 92 Year
  Sex: Female

DRUGS (1)
  1. GENOTROPIN [Suspect]
     Active Substance: SOMATROPIN
     Dosage: 0.3 MG
     Route: 058

REACTIONS (6)
  - Blood sodium decreased [Unknown]
  - Nausea [Unknown]
  - Device mechanical issue [Unknown]
  - Intentional device use issue [Unknown]
  - Device leakage [Unknown]
  - Wrong technique in device usage process [Unknown]
